FAERS Safety Report 8297238-2 (Version None)
Quarter: 2012Q2

REPORT INFORMATION
  Report Type: 
  Country: None (occurrence: None)
  Receive Date: 20120416
  Receipt Date: 20120402
  Transmission Date: 20120825
  Serious: Yes (Other)
  Sender: FDA-Public Use
  Company Number: ES-1191308

PATIENT
  Age: 75 Year
  Sex: Female

DRUGS (5)
  1. MYDRIACYL [Concomitant]
  2. TOBRADEX [Concomitant]
  3. ACTOCORTINA [Concomitant]
  4. OFTALAR [Concomitant]
  5. VIGAMOX [Suspect]
     Dosage: (0.2-0.3 ML OF DILUTION 3 C VIGAMOX + 3 CC ACTOCORTINA INTRAOCULAR)
     Route: 031
     Dates: start: 20120228, end: 20120228

REACTIONS (7)
  - HYPOPYON [None]
  - TOXIC ANTERIOR SEGMENT SYNDROME [None]
  - ANTERIOR CHAMBER FIBRIN [None]
  - CORNEAL OEDEMA [None]
  - OFF LABEL USE [None]
  - DISEASE PROGRESSION [None]
  - VITRITIS [None]
